FAERS Safety Report 9663352 (Version 1)
Quarter: 2013Q4

REPORT INFORMATION
  Report Type: Spontaneous
  Country: US (occurrence: US)
  Receive Date: 20131101
  Receipt Date: 20131101
  Transmission Date: 20140711
  Serious: Yes (Hospitalization)
  Sender: FDA-Public Use
  Company Number: US-BRISTOL-MYERS SQUIBB COMPANY-19679554

PATIENT
  Age: 71 Year
  Sex: Male

DRUGS (9)
  1. COUMADIN [Suspect]
     Indication: ATRIAL FIBRILLATION
  2. SUTENT [Suspect]
  3. LOTENSIN [Concomitant]
  4. METFORMIN HCL [Concomitant]
  5. LIPITOR [Concomitant]
  6. CALTRATE + D [Concomitant]
  7. ASPIRIN [Concomitant]
  8. VITAMIN B [Concomitant]
     Indication: EYE DISORDER
  9. METOPROLOL [Concomitant]

REACTIONS (3)
  - Haemorrhage [Unknown]
  - Haemoptysis [Unknown]
  - Dyspnoea [Not Recovered/Not Resolved]
